FAERS Safety Report 9796295 (Version 2)
Quarter: 2014Q1

REPORT INFORMATION
  Report Type: Spontaneous
  Country: US (occurrence: US)
  Receive Date: 20140103
  Receipt Date: 20140207
  Transmission Date: 20141002
  Serious: Yes (Hospitalization, Other)
  Sender: FDA-Public Use
  Company Number: US-009507513-1312USA012643

PATIENT
  Age: 79 Year
  Sex: Female

DRUGS (6)
  1. JANUVIA [Suspect]
     Indication: DIABETES MELLITUS
     Dosage: 100 MG, QD
     Route: 048
  2. GLIMEPIRIDE [Concomitant]
  3. CLONIDINE [Concomitant]
  4. AMLODIPINE [Concomitant]
  5. METOPROLOL [Concomitant]
  6. LOSARTAN POTASSIUM TABLETS [Concomitant]

REACTIONS (4)
  - Surgery [Unknown]
  - Vascular occlusion [Unknown]
  - Blood cholesterol increased [Unknown]
  - Muscle spasms [Recovered/Resolved]
